FAERS Safety Report 25639651 (Version 1)
Quarter: 2025Q3

REPORT INFORMATION
  Report Type: Spontaneous
  Country: GB (occurrence: GB)
  Receive Date: 20250804
  Receipt Date: 20250804
  Transmission Date: 20251020
  Serious: Yes (Hospitalization, Other)
  Sender: MYLAN
  Company Number: None

PATIENT
  Age: 37 Year
  Sex: Male
  Weight: 103 kg

DRUGS (16)
  1. FAMOTIDINE [Suspect]
     Active Substance: FAMOTIDINE
     Indication: Acquired oesophageal web
     Dosage: 80 MILLIGRAM, QD
  2. FAMOTIDINE [Suspect]
     Active Substance: FAMOTIDINE
     Dosage: 80 MILLIGRAM, QD
  3. FAMOTIDINE [Suspect]
     Active Substance: FAMOTIDINE
     Dosage: 80 MILLIGRAM, QD
     Route: 065
  4. FAMOTIDINE [Suspect]
     Active Substance: FAMOTIDINE
     Dosage: 80 MILLIGRAM, QD
     Route: 065
  5. FAMOTIDINE [Suspect]
     Active Substance: FAMOTIDINE
     Dosage: 40 MILLIGRAM, QD
  6. FAMOTIDINE [Suspect]
     Active Substance: FAMOTIDINE
     Dosage: 40 MILLIGRAM, QD
  7. FAMOTIDINE [Suspect]
     Active Substance: FAMOTIDINE
     Dosage: 40 MILLIGRAM, QD
     Route: 065
  8. FAMOTIDINE [Suspect]
     Active Substance: FAMOTIDINE
     Dosage: 40 MILLIGRAM, QD
     Route: 065
  9. SERTRALINE [Concomitant]
     Active Substance: SERTRALINE HYDROCHLORIDE
     Indication: Depression
  10. SERTRALINE [Concomitant]
     Active Substance: SERTRALINE HYDROCHLORIDE
     Route: 065
  11. SERTRALINE [Concomitant]
     Active Substance: SERTRALINE HYDROCHLORIDE
     Route: 065
  12. SERTRALINE [Concomitant]
     Active Substance: SERTRALINE HYDROCHLORIDE
  13. TIRZEPATIDE [Concomitant]
     Active Substance: TIRZEPATIDE
  14. TIRZEPATIDE [Concomitant]
     Active Substance: TIRZEPATIDE
     Route: 065
  15. TIRZEPATIDE [Concomitant]
     Active Substance: TIRZEPATIDE
     Route: 065
  16. TIRZEPATIDE [Concomitant]
     Active Substance: TIRZEPATIDE

REACTIONS (5)
  - Vomiting projectile [Recovered/Resolved]
  - Eructation [Recovered/Resolved]
  - Flank pain [Recovered/Resolved]
  - Cold sweat [Recovered/Resolved]
  - Diarrhoea [Recovered/Resolved]

NARRATIVE: CASE EVENT DATE: 20250721
